FAERS Safety Report 6849394-8 (Version None)
Quarter: 2010Q3

REPORT INFORMATION
  Report Type: 
  Country: None (occurrence: None)
  Receive Date: 20100716
  Receipt Date: 20100706
  Transmission Date: 20110219
  Serious: Yes (Death)
  Sender: FDA-Public Use
  Company Number: EG-ELI_LILLY_AND_COMPANY-EG201006003831

PATIENT
  Sex: Male

DRUGS (4)
  1. ZYPREXA [Suspect]
     Indication: DEMENTIA
     Dates: start: 20050612, end: 20050720
  2. ZYPREXA [Suspect]
     Dates: start: 20050925, end: 20060108
  3. RISPERIDONE [Concomitant]
     Indication: PSYCHOTIC DISORDER
  4. SEROQUEL [Concomitant]
     Indication: PSYCHOTIC DISORDER

REACTIONS (3)
  - ADVERSE EVENT [None]
  - DEATH [None]
  - OFF LABEL USE [None]
